FAERS Safety Report 11887759 (Version 1)
Quarter: 2016Q1

REPORT INFORMATION
  Report Type: Spontaneous
  Country: US (occurrence: US)
  Receive Date: 20160105
  Receipt Date: 20160105
  Transmission Date: 20160526
  Serious: Yes (Other)
  Sender: FDA-Public Use
  Company Number: US-AUROBINDO-AUR-APL-2015-12057

PATIENT
  Age: 60 Year
  Sex: Female

DRUGS (15)
  1. FLUVOXAMINE [Interacting]
     Active Substance: FLUVOXAMINE
     Indication: DEPRESSION
     Dosage: 50 MG, DAILY
     Route: 048
  2. LITHIUM CARBONATE. [Suspect]
     Active Substance: LITHIUM CARBONATE
     Indication: DEPRESSION
     Dosage: 450 MG, TWO TIMES A DAY
     Route: 048
  3. FLUVOXAMINE [Interacting]
     Active Substance: FLUVOXAMINE
     Dosage: 200 MG, DAILY
     Route: 048
     Dates: start: 20140625
  4. FLUVOXAMINE [Interacting]
     Active Substance: FLUVOXAMINE
     Dosage: 100 MG, DAILY
     Route: 048
     Dates: start: 20140815
  5. BUPROPION. [Suspect]
     Active Substance: BUPROPION
     Indication: DEPRESSION
     Dosage: 200 MG PO AM, 100 MG PO PM
     Route: 048
  6. FLUVOXAMINE [Interacting]
     Active Substance: FLUVOXAMINE
     Dosage: 300 MG, DAILY
     Route: 048
     Dates: start: 20140701
  7. FLUVOXAMINE [Interacting]
     Active Substance: FLUVOXAMINE
     Dosage: 200 MG, DAILY
     Route: 048
     Dates: start: 20140814
  8. FLUVOXAMINE [Interacting]
     Active Substance: FLUVOXAMINE
     Dosage: 150 MG, DAILY
     Route: 048
     Dates: start: 20140624
  9. FLUVOXAMINE [Interacting]
     Active Substance: FLUVOXAMINE
     Dosage: 250 MG, DAILY
     Route: 048
  10. LEVOTHYROXINE SODIUM. [Concomitant]
     Active Substance: LEVOTHYROXINE SODIUM
     Indication: DEPRESSION
     Dosage: 50 MG, DAILY
     Route: 048
  11. QUETIAPINE [Interacting]
     Active Substance: QUETIAPINE
     Indication: DEPRESSION
     Dosage: 100 MG, AT BED TIME
     Route: 048
  12. FLUVOXAMINE [Interacting]
     Active Substance: FLUVOXAMINE
     Dosage: 250 MG, DAILY
     Route: 048
     Dates: start: 20140630
  13. FLUVOXAMINE [Interacting]
     Active Substance: FLUVOXAMINE
     Dosage: 50 MG, DAILY
     Route: 048
     Dates: start: 20140818, end: 20140819
  14. QUETIAPINE [Interacting]
     Active Substance: QUETIAPINE
     Dosage: 200 MG, AT BED TIME
     Route: 048
     Dates: start: 20140812
  15. FLUVOXAMINE [Interacting]
     Active Substance: FLUVOXAMINE
     Dosage: 100 MG, DAILY
     Route: 048
     Dates: start: 20140602

REACTIONS (4)
  - Oscillopsia [Recovered/Resolved]
  - Drug interaction [Recovered/Resolved]
  - Visual impairment [Recovered/Resolved]
  - Tremor [Recovered/Resolved]
